FAERS Safety Report 12447926 (Version 1)
Quarter: 2016Q2

REPORT INFORMATION
  Report Type: Spontaneous
  Country: JP (occurrence: JP)
  Receive Date: 20160608
  Receipt Date: 20160608
  Transmission Date: 20160815
  Serious: Yes (Hospitalization)
  Sender: FDA-Public Use
  Company Number: PHJP1998JP000826

PATIENT
  Age: 41 Year
  Sex: Male

DRUGS (7)
  1. SANDIMMUN SIM+CAP [Suspect]
     Active Substance: CYCLOSPORINE
     Indication: ERYTHRODERMIC PSORIASIS
  2. LIDOMEX [Concomitant]
     Active Substance: PREDNISOLONE VALERATE ACETATE
     Indication: PSORIASIS
     Route: 061
     Dates: start: 19910716
  3. LOXONIN [Concomitant]
     Active Substance: LOXOPROFEN SODIUM
     Indication: PSORIASIS
     Route: 048
     Dates: start: 19910716
  4. SANDIMMUN SIM+CAP [Suspect]
     Active Substance: CYCLOSPORINE
     Indication: PSORIATIC ARTHROPATHY
  5. DIACORT [Concomitant]
     Active Substance: DIFLORASONE DIACETATE
     Indication: PSORIASIS
     Route: 061
     Dates: start: 19910716
  6. SANDIMMUN SIM+CAP [Suspect]
     Active Substance: CYCLOSPORINE
     Indication: PSORIASIS
     Dosage: 150MG
     Route: 048
     Dates: start: 19910716
  7. TIGASON//ETRETINATE [Concomitant]
     Indication: PSORIASIS
     Route: 048
     Dates: start: 19910716

REACTIONS (1)
  - Cystitis noninfective [Recovering/Resolving]

NARRATIVE: CASE EVENT DATE: 19971001
